FAERS Safety Report 4487648-3 (Version None)
Quarter: 2004Q4

REPORT INFORMATION
  Report Type: 
  Country: None (occurrence: None)
  Receive Date: 20041027
  Receipt Date: 20041027
  Transmission Date: 20050328
  Serious: No
  Sender: FDA-Public Use
  Company Number: None

PATIENT
  Age: 56 Year
  Sex: Female
  Weight: 58.514 kg

DRUGS (1)
  1. ESTRACE [Suspect]
     Indication: MENOPAUSE
     Dosage: 1 MG PO 1 Q EVEN DAYS 2 Q ODD DAYS TRIED 1 MONTH
     Route: 048

REACTIONS (2)
  - ANGIOPATHY [None]
  - VULVOVAGINAL DRYNESS [None]
